FAERS Safety Report 9366448 (Version 1)
Quarter: 2013Q2

REPORT INFORMATION
  Report Type: Spontaneous
  Country: AU (occurrence: AU)
  Receive Date: 20130625
  Receipt Date: 20130625
  Transmission Date: 20140414
  Serious: Yes (Death)
  Sender: FDA-Public Use
  Company Number: AU-SANOFI-AVENTIS-2013SA061663

PATIENT
  Age: 65 Year
  Sex: 0

DRUGS (1)
  1. ELOXATIN [Suspect]
     Indication: PANCREATIC CARCINOMA
     Route: 065

REACTIONS (2)
  - Death [Fatal]
  - Off label use [Unknown]
